FAERS Safety Report 25764467 (Version 1)
Quarter: 2025Q3

REPORT INFORMATION
  Report Type: Spontaneous
  Country: US (occurrence: US)
  Receive Date: 20250905
  Receipt Date: 20250905
  Transmission Date: 20251020
  Serious: No
  Sender: DOMPE FARMACEUTICI
  Company Number: US-FARMAPROD-202501-0057

PATIENT
  Sex: Female

DRUGS (38)
  1. OXERVATE [Suspect]
     Active Substance: CENEGERMIN-BKBJ
     Indication: Neurotrophic keratopathy
     Route: 047
  2. ADVIL [Concomitant]
     Active Substance: IBUPROFEN
  3. TYLENOL EXTRA STRENGTH [Concomitant]
     Active Substance: ACETAMINOPHEN
  4. ACETAMINOPHEN\HYDROCODONE [Concomitant]
     Active Substance: ACETAMINOPHEN\HYDROCODONE
  5. GENOTROPIN [Concomitant]
     Active Substance: SOMATROPIN
  6. VALIUM [Concomitant]
     Active Substance: DIAZEPAM
  7. NATURAL VEGETABLE LAXATIVE [Concomitant]
     Active Substance: SENNOSIDES A AND B
  8. PROGESTERONE [Concomitant]
     Active Substance: PROGESTERONE
  9. LICORICE [Concomitant]
     Active Substance: LICORICE
  10. CALCIUM [Concomitant]
     Active Substance: CALCIUM
  11. ELECTROLYTES NOS [Concomitant]
     Active Substance: ELECTROLYTES NOS
  12. BIOTIN [Concomitant]
     Active Substance: BIOTIN
  13. EVENING PRIMROSE OIL [Concomitant]
     Active Substance: EVENING PRIMROSE OIL
  14. NICOTINAMIDE [Concomitant]
     Active Substance: NIACINAMIDE
  15. SPIRULIN [Concomitant]
  16. MAGNESIUM GLYCINATE [Concomitant]
     Active Substance: MAGNESIUM GLYCINATE
  17. MENAQUINONE 6 [Concomitant]
     Active Substance: MENAQUINONE 6
  18. DIETARY SUPPLEMENT\RESVERATROL [Concomitant]
     Active Substance: DIETARY SUPPLEMENT\RESVERATROL
  19. PROBIOTIC 10 BILLION DAILY MAINTENANCE [Concomitant]
  20. ZINC GLYCINATE [Concomitant]
     Active Substance: ZINC GLYCINATE
  21. TESTOSTERONE [Concomitant]
     Active Substance: TESTOSTERONE
  22. VITAMIN C [Concomitant]
     Active Substance: ASCORBIC ACID
  23. PRILOSEC OTC [Concomitant]
     Active Substance: OMEPRAZOLE MAGNESIUM
  24. CURCUMIN [Concomitant]
     Active Substance: CURCUMIN
  25. LORATADINE [Concomitant]
     Active Substance: LORATADINE
  26. VITAMIN E [Concomitant]
     Active Substance: .ALPHA.-TOCOPHEROL
  27. VITAMIN A and BETA CAROTENE [Concomitant]
  28. PRASTERONE [Concomitant]
     Active Substance: PRASTERONE
  29. NUVIGIL [Concomitant]
     Active Substance: ARMODAFINIL
  30. SYNTHROID [Concomitant]
     Active Substance: LEVOTHYROXINE SODIUM
  31. ERYTHROMYCIN [Concomitant]
     Active Substance: ERYTHROMYCIN
  32. REFRESH TEARS [Concomitant]
     Active Substance: CARBOXYMETHYLCELLULOSE SODIUM
  33. POLYMYXIN B SULFATE [Concomitant]
     Active Substance: POLYMYXIN B SULFATE
  34. LOTEMAX [Concomitant]
     Active Substance: LOTEPREDNOL ETABONATE
  35. CHLORELLA [CHLORELLA PYRENOIDOSA] [Concomitant]
  36. CANNABIDIOL [Concomitant]
     Active Substance: CANNABIDIOL
  37. D-HIST D [Concomitant]
  38. HERBALS\HOMEOPATHICS\GOLDENSEAL [Concomitant]
     Active Substance: HERBALS\HOMEOPATHICS\GOLDENSEAL

REACTIONS (4)
  - Malaise [Unknown]
  - Therapy interrupted [Unknown]
  - Vision blurred [Unknown]
  - Eyelid irritation [Unknown]
